FAERS Safety Report 21413670 (Version 1)
Quarter: 2022Q4

REPORT INFORMATION
  Report Type: Other
  Country: None (occurrence: PE)
  Receive Date: 20221006
  Receipt Date: 20221006
  Transmission Date: 20230113
  Serious: Yes (Hospitalization)
  Sender: FDA-Public Use
  Company Number: PE-MLV Pharma LLC-2133507

PATIENT
  Age: 12 Year
  Sex: Male

DRUGS (3)
  1. BETAMETHASONE DIPROPIONATE [Suspect]
     Active Substance: BETAMETHASONE DIPROPIONATE
     Indication: Varicella
     Route: 061
  2. GENTAMICIN [Suspect]
     Active Substance: GENTAMICIN
  3. CLOTRIMAZOLE [Suspect]
     Active Substance: CLOTRIMAZOLE

REACTIONS (1)
  - Symmetrical drug-related intertriginous and flexural exanthema [Recovering/Resolving]
